FAERS Safety Report 10488102 (Version 1)
Quarter: 2014Q4

REPORT INFORMATION
  Report Type: Spontaneous
  Country: AU (occurrence: AU)
  Receive Date: 20141002
  Receipt Date: 20141002
  Transmission Date: 20150528
  Serious: Yes (Other)
  Sender: FDA-Public Use
  Company Number: PHHY2014AU126777

PATIENT
  Age: 61 Year
  Sex: Male

DRUGS (1)
  1. QUETIAPINE [Suspect]
     Active Substance: QUETIAPINE
     Indication: PSYCHIATRIC SYMPTOM
     Dosage: 25 MG, UNK

REACTIONS (9)
  - Neuralgia [Recovering/Resolving]
  - Night sweats [Recovering/Resolving]
  - Agitation [Recovering/Resolving]
  - Weight decreased [Recovering/Resolving]
  - Sleep disorder [Recovering/Resolving]
  - Chorea [Recovering/Resolving]
  - Slow response to stimuli [Recovering/Resolving]
  - Dyskinesia [Recovering/Resolving]
  - Delirium [Recovering/Resolving]
